FAERS Safety Report 25752086 (Version 1)
Quarter: 2025Q3

REPORT INFORMATION
  Report Type: Spontaneous
  Country: US (occurrence: None)
  Receive Date: 20250902
  Receipt Date: 20250902
  Transmission Date: 20251021
  Serious: No
  Sender: FDA-CTU
  Company Number: None

PATIENT
  Age: 34 Year
  Sex: Male
  Weight: 103.5 kg

DRUGS (4)
  1. FLUPHENAZINE [Suspect]
     Active Substance: FLUPHENAZINE
     Indication: Schizophrenia
  2. TIVICAY [Concomitant]
     Active Substance: DOLUTEGRAVIR SODIUM
  3. DESCOVY [Concomitant]
     Active Substance: EMTRICITABINE\TENOFOVIR ALAFENAMIDE FUMARATE
  4. FLUPHENAZINE [Concomitant]
     Active Substance: FLUPHENAZINE

REACTIONS (11)
  - Asphyxia [None]
  - Spinal disorder [None]
  - Dyspnoea [None]
  - Musculoskeletal discomfort [None]
  - Chest discomfort [None]
  - Anxiety [None]
  - Drug ineffective [None]
  - Pain [None]
  - Oxygen saturation decreased [None]
  - Hypoglossal nerve disorder [None]
  - Neuralgia [None]

NARRATIVE: CASE EVENT DATE: 20250902
